FAERS Safety Report 23096427 (Version 1)
Quarter: 2023Q4

REPORT INFORMATION
  Report Type: Spontaneous
  Country: US (occurrence: None)
  Receive Date: 20231022
  Receipt Date: 20231022
  Transmission Date: 20240110
  Serious: Yes (Disabling)
  Sender: FDA-Public Use
  Company Number: None

PATIENT
  Age: 32 Year
  Sex: Female
  Weight: 47.25 kg

DRUGS (3)
  1. CIPROFLOXACIN [Suspect]
     Active Substance: CIPROFLOXACIN
     Indication: Genitourinary symptom
     Dosage: OTHER QUANTITY : 10 TABLET(S);?FREQUENCY : TWICE A DAY;?
     Route: 048
     Dates: start: 20200101, end: 20200105
  2. CIPROFLOXACIN [Suspect]
     Active Substance: CIPROFLOXACIN
     Indication: Laboratory test normal
  3. VITAMIN D [Concomitant]
     Active Substance: VITAMIN D NOS

REACTIONS (15)
  - Anxiety [None]
  - Panic attack [None]
  - Nervous system disorder [None]
  - Muscle atrophy [None]
  - Fatigue [None]
  - Cognitive disorder [None]
  - Neuralgia [None]
  - Tendon pain [None]
  - Muscular weakness [None]
  - Bedridden [None]
  - Gait inability [None]
  - Hepatic pain [None]
  - Hepatic enzyme increased [None]
  - Gastrointestinal disorder [None]
  - Asthenia [None]

NARRATIVE: CASE EVENT DATE: 20200210
